FAERS Safety Report 9942546 (Version 1)
Quarter: 2014Q1

REPORT INFORMATION
  Report Type: Report from Study
  Country: US (occurrence: US)
  Receive Date: 20140303
  Receipt Date: 20140303
  Transmission Date: 20141002
  Serious: No
  Sender: FDA-Public Use
  Company Number: US-ABBVIE-13P-163-1045005-00

PATIENT
  Age: 33 Year
  Sex: Male

DRUGS (6)
  1. HUMIRA [Suspect]
     Indication: CROHN^S DISEASE
     Route: 058
     Dates: start: 20130105, end: 20130105
  2. ZOFRAN [Concomitant]
     Indication: NAUSEA
  3. LORTAB [Concomitant]
     Indication: PAIN
  4. DURAGESIC [Concomitant]
     Indication: PAIN
  5. OMEPRAZOLE [Concomitant]
     Indication: GASTROOESOPHAGEAL REFLUX DISEASE
  6. KEPPRA [Concomitant]
     Indication: CONVULSION
     Dosage: MORNING AND NIGHT

REACTIONS (1)
  - Drug administration error [Not Recovered/Not Resolved]
